FAERS Safety Report 21891665 (Version 3)
Quarter: 2023Q1

REPORT INFORMATION
  Report Type: Report from Study
  Country: US (occurrence: US)
  Receive Date: 20230120
  Receipt Date: 20230306
  Transmission Date: 20230417
  Serious: Yes (Hospitalization, Other)
  Sender: FDA-Public Use
  Company Number: US-XERIS PHARMACEUTICALS-2023XER00009

PATIENT
  Age: 67 Year
  Sex: Male

DRUGS (4)
  1. RECORLEV [Suspect]
     Active Substance: LEVOKETOCONAZOLE
     Indication: Cushing^s syndrome
     Dosage: 1 TABLET (150 MG), 2X/DAY
     Route: 048
     Dates: start: 20221219, end: 202301
  2. RECORLEV [Suspect]
     Active Substance: LEVOKETOCONAZOLE
     Dosage: 1 TABLET (150 MG), 1X/DAY
     Route: 048
     Dates: start: 202301, end: 202301
  3. RECORLEV [Suspect]
     Active Substance: LEVOKETOCONAZOLE
     Dosage: 1 TABLET (150 MG), 1X/DAY
     Route: 048
  4. WARFARIN [Concomitant]
     Active Substance: WARFARIN

REACTIONS (6)
  - International normalised ratio increased [Unknown]
  - Catheterisation cardiac [Unknown]
  - Dyspnoea [Unknown]
  - Tooth disorder [Unknown]
  - Toothache [Unknown]
  - Palpitations [Unknown]

NARRATIVE: CASE EVENT DATE: 20221219
